FAERS Safety Report 4634918-1 (Version None)
Quarter: 2005Q2

REPORT INFORMATION
  Report Type: 
  Country: None (occurrence: None)
  Receive Date: 20050412
  Receipt Date: 20050405
  Transmission Date: 20051028
  Serious: No
  Sender: FDA-Public Use
  Company Number: 2004CG02461

PATIENT
  Age: 45 Year
  Sex: Female
  Weight: 53 kg

DRUGS (6)
  1. ZOMIG [Suspect]
     Indication: MIGRAINE
     Dates: end: 20041123
  2. NEURONTIN [Concomitant]
  3. ZOLOFT [Concomitant]
  4. GESTODENE AND ETHINYL ESTRADIOL [Concomitant]
  5. IBUPROFEN [Concomitant]
  6. LEXOMIL [Concomitant]

REACTIONS (7)
  - CEREBROVASCULAR ACCIDENT [None]
  - FACIAL PAIN [None]
  - FACIAL PALSY [None]
  - NAUSEA [None]
  - PAIN IN JAW [None]
  - PARAESTHESIA [None]
  - SENSORY LOSS [None]
